FAERS Safety Report 8295357-8 (Version None)
Quarter: 2012Q2

REPORT INFORMATION
  Report Type: 
  Country: None (occurrence: None)
  Receive Date: 20120418
  Receipt Date: 20120410
  Transmission Date: 20120825
  Serious: Yes (Hospitalization)
  Sender: FDA-Public Use
  Company Number: FR-ROCHE-1044316

PATIENT
  Sex: Male

DRUGS (10)
  1. DEPAKENE [Concomitant]
     Dosage: DOSE DECREASED
     Dates: start: 20110701
  2. ASPIRIN [Concomitant]
     Dates: start: 20110901
  3. DEPAKENE [Concomitant]
     Dosage: 2.5 TWICE DAILY
     Dates: start: 20090701
  4. TENORETIC 100 [Concomitant]
     Dosage: 50/12.5
     Dates: start: 20110901, end: 20120125
  5. CORDARONE [Suspect]
     Indication: PRODUCT USED FOR UNKNOWN INDICATION
     Dosage: CORDARONE 200 MG
     Route: 048
     Dates: start: 20110901, end: 20120123
  6. AMIODARONE HCL [Concomitant]
     Dates: start: 20110901
  7. VALIUM [Suspect]
     Indication: PRODUCT USED FOR UNKNOWN INDICATION
     Dosage: 10 MG/2ML SOLUTION
     Route: 042
     Dates: start: 20120123, end: 20120123
  8. ADENURIC [Concomitant]
     Dosage: ADENURIC 80
     Dates: start: 20110201
  9. ACETAMINOPHEN [Concomitant]
     Indication: BACK PAIN
  10. IOMERON-150 [Suspect]
     Indication: PRODUCT USED FOR UNKNOWN INDICATION
     Dosage: IOMERON 400
     Route: 042
     Dates: start: 20120123, end: 20120123

REACTIONS (1)
  - ELECTROCARDIOGRAM QT PROLONGED [None]
